FAERS Safety Report 19960500 (Version 1)
Quarter: 2021Q4

REPORT INFORMATION
  Report Type: Report from Study
  Country: US (occurrence: US)
  Receive Date: 20211015
  Receipt Date: 20211015
  Transmission Date: 20220303
  Serious: Yes (Other)
  Sender: FDA-Public Use
  Company Number: US-SUNOVION-2020SUN004075

PATIENT

DRUGS (2)
  1. BROVANA [Suspect]
     Active Substance: ARFORMOTEROL TARTRATE
     Dosage: 15MCG/2ML
     Route: 055
  2. BUDESONIDE [Suspect]
     Active Substance: BUDESONIDE

REACTIONS (2)
  - Tracheal plastic repair [Unknown]
  - Aphonia [Unknown]
